FAERS Safety Report 21833360 (Version 2)
Quarter: 2023Q1

REPORT INFORMATION
  Report Type: Report from Study
  Country: EG (occurrence: EG)
  Receive Date: 20230107
  Receipt Date: 20230110
  Transmission Date: 20230418
  Serious: Yes (Other)
  Sender: FDA-Public Use
  Company Number: EG-002147023-NVSC2023EG002172

PATIENT
  Sex: Male

DRUGS (6)
  1. ENTRESTO [Suspect]
     Active Substance: SACUBITRIL\VALSARTAN
     Indication: Cardiac failure
     Dosage: 1 DOSAGE FORM, BID, (50 MG)
     Route: 048
     Dates: start: 202001, end: 202002
  2. ENTRESTO [Suspect]
     Active Substance: SACUBITRIL\VALSARTAN
     Dosage: 1 DOSAGE FORM, BID, (100 MG)
     Route: 048
     Dates: start: 202002, end: 2022
  3. PLAVIX [Concomitant]
     Active Substance: CLOPIDOGREL BISULFATE
     Indication: Coagulopathy
     Dosage: UNK, QD
     Route: 065
     Dates: start: 202001
  4. ASPIRIN [Concomitant]
     Active Substance: ASPIRIN
     Indication: Anticoagulant therapy
     Dosage: UNK, QD
     Route: 065
     Dates: start: 201801
  5. IVABRADINE [Concomitant]
     Active Substance: IVABRADINE
     Indication: Arterial disorder
     Dosage: UNK, BID
     Route: 065
     Dates: start: 201801
  6. ATOREZA [Concomitant]
     Indication: Prophylaxis
     Dosage: UNK, QD, (AT NIGHT)
     Route: 065
     Dates: start: 201801

REACTIONS (2)
  - Ejection fraction decreased [Not Recovered/Not Resolved]
  - Myocardial necrosis marker increased [Not Recovered/Not Resolved]
